FAERS Safety Report 9437130 (Version 2)
Quarter: 2013Q3

REPORT INFORMATION
  Report Type: Spontaneous
  Country: FR (occurrence: FR)
  Receive Date: 20130802
  Receipt Date: 20130808
  Transmission Date: 20140515
  Serious: Yes (Disabling)
  Sender: FDA-Public Use
  Company Number: FR-JNJFOC-20130714883

PATIENT
  Age: 51 Year
  Sex: Male

DRUGS (23)
  1. STELARA [Suspect]
     Indication: PSORIATIC ARTHROPATHY
     Route: 058
     Dates: start: 201009, end: 201107
  2. STELARA [Suspect]
     Indication: PSORIASIS
     Route: 058
     Dates: start: 201009, end: 201107
  3. STELARA [Suspect]
     Indication: PSORIASIS
     Route: 058
     Dates: start: 201009, end: 201107
  4. REMICADE [Suspect]
     Indication: PSORIATIC ARTHROPATHY
     Route: 042
     Dates: start: 201107, end: 20130424
  5. REMICADE [Suspect]
     Indication: PSORIATIC ARTHROPATHY
     Route: 042
     Dates: start: 200707, end: 200901
  6. REMICADE [Suspect]
     Indication: PSORIASIS
     Route: 042
     Dates: start: 200707, end: 200901
  7. REMICADE [Suspect]
     Indication: PSORIASIS
     Route: 042
     Dates: start: 201107, end: 20130424
  8. REMICADE [Suspect]
     Indication: PSORIASIS
     Route: 042
     Dates: start: 200707, end: 200901
  9. REMICADE [Suspect]
     Indication: PSORIASIS
     Route: 042
     Dates: start: 201107, end: 20130424
  10. ENBREL [Suspect]
     Indication: PSORIATIC ARTHROPATHY
     Route: 065
     Dates: start: 200907, end: 201009
  11. ENBREL [Suspect]
     Indication: PSORIASIS
     Route: 065
     Dates: start: 200907, end: 201009
  12. ENBREL [Suspect]
     Indication: PSORIASIS
     Route: 065
     Dates: start: 200907, end: 201009
  13. HUMIRA [Suspect]
     Indication: PSORIATIC ARTHROPATHY
     Route: 058
     Dates: start: 200901, end: 200907
  14. HUMIRA [Suspect]
     Indication: PSORIASIS
     Route: 058
     Dates: start: 200901, end: 200907
  15. HUMIRA [Suspect]
     Indication: PSORIASIS
     Route: 058
     Dates: start: 200901, end: 200907
  16. LYRICA [Concomitant]
     Indication: PRODUCT USED FOR UNKNOWN INDICATION
     Route: 065
  17. METFORMINE [Concomitant]
     Indication: PRODUCT USED FOR UNKNOWN INDICATION
     Route: 065
  18. RISPERDAL [Concomitant]
     Indication: PRODUCT USED FOR UNKNOWN INDICATION
     Route: 065
  19. DOLIPRANE [Concomitant]
     Indication: PRODUCT USED FOR UNKNOWN INDICATION
     Route: 065
  20. DAIVONEX [Concomitant]
     Indication: PRODUCT USED FOR UNKNOWN INDICATION
     Route: 065
  21. NASONEX [Concomitant]
     Indication: PRODUCT USED FOR UNKNOWN INDICATION
     Route: 065
  22. METOJECT [Concomitant]
     Indication: PRODUCT USED FOR UNKNOWN INDICATION
     Route: 065
  23. SPECIAFOLDINE [Concomitant]
     Indication: PRODUCT USED FOR UNKNOWN INDICATION
     Route: 065

REACTIONS (2)
  - Lewis-Sumner syndrome [Not Recovered/Not Resolved]
  - Peripheral sensorimotor neuropathy [Not Recovered/Not Resolved]
